FAERS Safety Report 6110299-1 (Version None)
Quarter: 2009Q1

REPORT INFORMATION
  Report Type: 
  Country: None (occurrence: None)
  Receive Date: 20090310
  Receipt Date: 20090306
  Transmission Date: 20090719
  Serious: Yes (Death, Hospitalization, Disabling)
  Sender: FDA-Public Use
  Company Number: JP-ABBOTT-08P-087-0478846-00

PATIENT
  Sex: Female
  Weight: 42 kg

DRUGS (8)
  1. HUMIRA [Suspect]
     Indication: RHEUMATOID ARTHRITIS
     Route: 058
     Dates: start: 20080819, end: 20080917
  2. METHOTREXATE [Suspect]
     Indication: RHEUMATOID ARTHRITIS
     Route: 048
     Dates: start: 20050408, end: 20080926
  3. SODIUM RISEDRONATE HYDRATE [Concomitant]
     Indication: OSTEOPOROSIS
     Route: 048
     Dates: start: 20050408, end: 20080926
  4. LOXOPROFEN SODIUM [Concomitant]
     Indication: RHEUMATOID ARTHRITIS
     Dosage: 120 MG DAILY
     Route: 048
     Dates: start: 20041210, end: 20080926
  5. CHLORPHENESIN CARBAMATE BULK-EXPORT [Concomitant]
     Indication: BACK PAIN
     Dosage: 500 MG DAILY
     Route: 048
     Dates: start: 20041210, end: 20080926
  6. TEPRENONE [Concomitant]
     Indication: GASTRITIS
     Dosage: 100 MG DAILY
     Dates: start: 20080220, end: 20080926
  7. SODIUM HYALURONATE [Concomitant]
     Indication: RHEUMATOID ARTHRITIS
     Route: 050
     Dates: start: 20080206, end: 20080926
  8. BETAMETHASONE SODIUM PHOSPHATE [Concomitant]
     Indication: RHEUMATOID ARTHRITIS
     Route: 050
     Dates: start: 20080206, end: 20080926

REACTIONS (7)
  - DEATH [None]
  - DEHYDRATION [None]
  - EATING DISORDER [None]
  - ENTEROCOLITIS VIRAL [None]
  - IMMUNOSUPPRESSION [None]
  - MENINGITIS [None]
  - SPEECH DISORDER [None]
